FAERS Safety Report 7274382-X (Version None)
Quarter: 2011Q1

REPORT INFORMATION
  Report Type: 
  Country: None (occurrence: None)
  Receive Date: 20110204
  Receipt Date: 20110126
  Transmission Date: 20110831
  Serious: Yes (Hospitalization)
  Sender: FDA-Public Use
  Company Number: US-SOLVAY-00210007429

PATIENT
  Age: 19481 Day
  Sex: Female

DRUGS (4)
  1. VITAMIN D [Concomitant]
     Indication: VITAMIN SUPPLEMENTATION
     Dosage: DAILY DOSE:  50,000 UNITS ONCE A WEEK
     Route: 065
  2. ASACOL [Concomitant]
     Indication: COLITIS ULCERATIVE
     Dosage: DAILY DOSE: 2400 MILLIGRAM(S)
     Route: 048
     Dates: start: 20010101
  3. PROMETRIUM [Suspect]
     Dosage: DAILY DOSE: 400 MILLIGRAM(S)
     Route: 065
     Dates: start: 20101107, end: 20101122
  4. PROMETRIUM [Suspect]
     Indication: MENSTRUAL DISORDER
     Dosage: DAILY DOSE:  UNKNOWN
     Route: 065
     Dates: start: 20100201, end: 20100301

REACTIONS (5)
  - HAEMATOCRIT DECREASED [None]
  - LOSS OF CONSCIOUSNESS [None]
  - HAEMOGLOBIN DECREASED [None]
  - VAGINAL HAEMORRHAGE [None]
  - DRUG INEFFECTIVE [None]
